FAERS Safety Report 7269467-8 (Version None)
Quarter: 2011Q1

REPORT INFORMATION
  Report Type: 
  Country: None (occurrence: None)
  Receive Date: 20110202
  Receipt Date: 20100827
  Transmission Date: 20110831
  Serious: Yes (Hospitalization, Other)
  Sender: FDA-Public Use
  Company Number: US-BAYER-200926415NA

PATIENT
  Sex: Female
  Weight: 58.957 kg

DRUGS (19)
  1. PREDNISONE [Concomitant]
     Dosage: 40 MG, UNK
     Route: 048
  2. BENZONATATE [Concomitant]
     Dosage: 200 MG, UNK
     Route: 048
  3. XANAX [Concomitant]
     Dosage: ??-SEP-2007
     Route: 065
  4. INDERAL [Concomitant]
     Indication: MIGRAINE
     Dosage: 80 MG, UNK
     Route: 048
  5. SOLU-MEDROL [Concomitant]
     Dosage: 40 MG, UNK
     Route: 042
  6. PROPRANOLOL [Concomitant]
     Dosage: 80 MG, UNK
     Route: 048
     Dates: start: 20000101
  7. CITALOPRAM [Concomitant]
     Dosage: 20 MG, UNK
  8. YAZ [Suspect]
  9. YAZ [Suspect]
     Indication: UTERINE HAEMORRHAGE
  10. EFFEXOR [Concomitant]
     Indication: DEPRESSION
     Dosage: 75 MG, UNK
     Route: 048
  11. ZOFRAN [Concomitant]
  12. AMBIEN [Concomitant]
     Dosage: 10 MG, UNK
     Route: 048
  13. ZOLOFT [Concomitant]
     Dosage: 100 MG, UNK
     Route: 048
     Dates: start: 20000101, end: 20080101
  14. IMITREX [Concomitant]
     Dosage: 100 MG, UNK
     Route: 048
  15. YAZ [Suspect]
     Indication: DYSMENORRHOEA
     Dosage: UNK UNK, QD
     Route: 048
     Dates: start: 20070601, end: 20071129
  16. PROVENTIL [Concomitant]
     Route: 055
     Dates: start: 20070101, end: 20080101
  17. PREVACID [Concomitant]
     Route: 065
     Dates: start: 20060101, end: 20080101
  18. YAZ [Suspect]
     Indication: PREMENSTRUAL SYNDROME
     Dosage: UNK
     Dates: start: 20080101
  19. OMNICEF [Concomitant]
     Dosage: 300 MG, BID
     Route: 048

REACTIONS (8)
  - PLEURISY [None]
  - PAIN [None]
  - ASTHMA [None]
  - PULMONARY EMBOLISM [None]
  - PULMONARY FUNCTION TEST DECREASED [None]
  - PULMONARY THROMBOSIS [None]
  - DYSPNOEA [None]
  - PLEURAL EFFUSION [None]
